FAERS Safety Report 16733069 (Version 1)
Quarter: 2019Q3

REPORT INFORMATION
  Report Type: Spontaneous
  Country: US (occurrence: US)
  Receive Date: 20190823
  Receipt Date: 20190823
  Transmission Date: 20191005
  Serious: Yes (Hospitalization, Other)
  Sender: FDA-Public Use
  Company Number: US-APOTEX-2019AP020696

PATIENT
  Age: 78 Year
  Sex: Female

DRUGS (3)
  1. FLECAINIDE [Suspect]
     Active Substance: FLECAINIDE
     Indication: ATRIAL FIBRILLATION
     Dosage: 50 MG, BID
     Route: 065
  2. HYDROCHLOROTHIAZIDE. [Suspect]
     Active Substance: HYDROCHLOROTHIAZIDE
     Indication: PRODUCT USED FOR UNKNOWN INDICATION
     Dosage: 25 MG, DAILY
     Route: 065
  3. ENALAPRIL [Suspect]
     Active Substance: ENALAPRIL
     Indication: PRODUCT USED FOR UNKNOWN INDICATION
     Dosage: 20 MG, BID
     Route: 048

REACTIONS (8)
  - Toxicity to various agents [Unknown]
  - Atrioventricular block first degree [Recovered/Resolved]
  - Cardiotoxicity [Recovered/Resolved]
  - Blood pressure systolic decreased [Unknown]
  - Electrocardiogram QRS complex prolonged [Recovered/Resolved]
  - Device malfunction [Recovered/Resolved]
  - Hyponatraemia [Recovered/Resolved]
  - Sinus bradycardia [Recovered/Resolved]
